FAERS Safety Report 9717279 (Version 3)
Quarter: 2013Q4

REPORT INFORMATION
  Report Type: Spontaneous
  Country: IT (occurrence: IT)
  Receive Date: 20131127
  Receipt Date: 20131220
  Transmission Date: 20140711
  Serious: Yes (Hospitalization, Other)
  Sender: FDA-Public Use
  Company Number: IT-TEVA-445457ISR

PATIENT
  Age: 77 Year
  Sex: Male

DRUGS (3)
  1. QUETIAPINE FUMARATE [Suspect]
     Indication: COGNITIVE DISORDER
     Dosage: 25 MILLIGRAM DAILY;
     Dates: start: 20130730, end: 20130911
  2. QUETIAPINE FUMARATE [Suspect]
     Dosage: 75 MILLIGRAM DAILY;
     Dates: start: 20130912, end: 20131104
  3. QUETIAPINE FUMARATE [Suspect]
     Dosage: 25 MILLIGRAM DAILY;
     Dates: start: 20131107, end: 20131107

REACTIONS (1)
  - Pancytopenia [Recovering/Resolving]
